FAERS Safety Report 6455776-9 (Version None)
Quarter: 2009Q4

REPORT INFORMATION
  Report Type: 
  Country: None (occurrence: None)
  Receive Date: 20091125
  Receipt Date: 20091103
  Transmission Date: 20100525
  Serious: No
  Sender: FDA-Public Use
  Company Number: US-ABBOTT-09P-163-0607147-00

PATIENT
  Sex: Male
  Weight: 69.008 kg

DRUGS (5)
  1. SIMCOR [Suspect]
     Indication: BLOOD CHOLESTEROL INCREASED
     Dosage: 500/20
     Dates: start: 20091020
  2. PRILOSEC [Suspect]
     Indication: GASTRIC ULCER
     Dosage: 20MG ONE TIME DOSE
     Dates: start: 20091102, end: 20091102
  3. ATENOLOL [Concomitant]
     Indication: DRUG USE FOR UNKNOWN INDICATION
  4. ASPIRIN [Concomitant]
     Indication: DRUG USE FOR UNKNOWN INDICATION
     Dosage: UNKNOWN
  5. PEPCID [Concomitant]
     Indication: GASTRIC ULCER
     Dosage: DAILY

REACTIONS (3)
  - FLATULENCE [None]
  - GASTRIC DISORDER [None]
  - PALPITATIONS [None]
